FAERS Safety Report 19689524 (Version 2)
Quarter: 2022Q1

REPORT INFORMATION
  Report Type: Spontaneous
  Country: BR (occurrence: BR)
  Receive Date: 20210812
  Receipt Date: 20220107
  Transmission Date: 20220424
  Serious: Yes (Other)
  Sender: FDA-Public Use
  Company Number: BR-AMGEN-BRASP2021118786

PATIENT
  Age: 53 Year
  Sex: Female
  Weight: 65 kg

DRUGS (5)
  1. VECTIBIX [Suspect]
     Active Substance: PANITUMUMAB
     Indication: Adenocarcinoma of colon
     Dosage: 380 MILLIGRAM,(1 TIME A DAY)
     Route: 042
     Dates: start: 20210623, end: 20210623
  2. FLUOROURACIL [Concomitant]
     Active Substance: FLUOROURACIL
     Indication: Chemotherapy
     Dosage: 528 MILLIGRAM (50 ML)
     Route: 065
     Dates: start: 20210623, end: 20210623
  3. LEUCOVORIN CALCIUM [Concomitant]
     Active Substance: LEUCOVORIN CALCIUM
     Indication: Chemotherapy
     Dosage: 528 MILLIGRAM PER MILLILITRE (FA 30 ML)
     Route: 065
     Dates: start: 20210623, end: 20210623
  4. EMEND [Concomitant]
     Active Substance: APREPITANT
     Indication: Vomiting
     Dosage: 150 MILLIGRAM, QD
     Route: 065
     Dates: start: 20210623, end: 20210623
  5. PALONOSETRON HYDROCHLORIDE [Concomitant]
     Active Substance: PALONOSETRON HYDROCHLORIDE
     Indication: Vomiting
     Dosage: 0.25 MILLIGRAM (FA 5ML)
     Route: 065
     Dates: start: 20210623, end: 20210623

REACTIONS (5)
  - Tremor [Recovered/Resolved]
  - Eyelid oedema [Recovered/Resolved]
  - Blood pressure increased [Recovered/Resolved]
  - Cyanosis [Recovered/Resolved]
  - Rash [Recovered/Resolved]

NARRATIVE: CASE EVENT DATE: 20210623
